FAERS Safety Report 6690470-0 (Version None)
Quarter: 2010Q2

REPORT INFORMATION
  Report Type: 
  Country: None (occurrence: None)
  Receive Date: 20100421
  Receipt Date: 20100416
  Transmission Date: 20101027
  Serious: Yes (Hospitalization)
  Sender: FDA-Public Use
  Company Number: US-ELI_LILLY_AND_COMPANY-US201003004746

PATIENT
  Sex: Female
  Weight: 61.678 kg

DRUGS (9)
  1. HUMALOG [Suspect]
     Indication: DIABETES MELLITUS
     Dosage: 4 U, 3/D
     Dates: start: 20091101
  2. HUMALOG [Suspect]
     Dosage: 4 U, 3/D
     Dates: start: 20091101
  3. LANTUS [Concomitant]
     Indication: DIABETES MELLITUS
     Dosage: 12 U, EACH EVENING
  4. LANTUS [Concomitant]
     Dosage: UNK, AS NEEDED
  5. STALEVO 100 [Concomitant]
     Indication: PARKINSON'S DISEASE
  6. ASPIRIN [Concomitant]
     Dosage: UNK, AS NEEDED
  7. DIOVAN [Concomitant]
     Dosage: UNK, AS NEEDED
  8. CELEXA [Concomitant]
     Dosage: UNK, AS NEEDED
  9. CLONAZEPAM [Concomitant]
     Dosage: UNK, AS NEEDED

REACTIONS (7)
  - ANXIETY [None]
  - BLOOD GLUCOSE DECREASED [None]
  - BLOOD GLUCOSE INCREASED [None]
  - DIABETIC KETOACIDOSIS [None]
  - INCORRECT DOSE ADMINISTERED [None]
  - MALABSORPTION FROM INJECTION SITE [None]
  - TREMOR [None]
